FAERS Safety Report 14802606 (Version 7)
Quarter: 2018Q2

REPORT INFORMATION
  Report Type: Report from Study
  Country: US (occurrence: US)
  Receive Date: 20180424
  Receipt Date: 20180627
  Transmission Date: 20180711
  Serious: Yes (Hospitalization, Other)
  Sender: FDA-Public Use
  Company Number: US-ACTELION-A-US2016-140043

PATIENT
  Age: 65 Year
  Sex: Female
  Weight: 74.83 kg

DRUGS (3)
  1. OPSUMIT [Suspect]
     Active Substance: MACITENTAN
     Indication: PULMONARY ARTERIAL HYPERTENSION
     Dosage: 10 MG, QD
     Route: 048
     Dates: start: 20160322
  2. NIFEDIPINE. [Concomitant]
     Active Substance: NIFEDIPINE
  3. ORENITRAM [Concomitant]
     Active Substance: TREPROSTINIL
     Dosage: 0.875 MG, TID

REACTIONS (19)
  - Deafness [Unknown]
  - Oedema peripheral [Not Recovered/Not Resolved]
  - Gastrooesophageal reflux disease [Recovered/Resolved]
  - Chest discomfort [Recovered/Resolved]
  - Cough [Unknown]
  - Chest pain [Recovered/Resolved with Sequelae]
  - Gastroenteritis viral [Not Recovered/Not Resolved]
  - Viral upper respiratory tract infection [Unknown]
  - Dyspnoea [Unknown]
  - Malaise [Unknown]
  - Diarrhoea [Unknown]
  - Nasopharyngitis [Unknown]
  - Pneumonia [Unknown]
  - Acute myocardial infarction [Recovered/Resolved with Sequelae]
  - Palpitations [Recovered/Resolved with Sequelae]
  - Vomiting [Unknown]
  - Dysgeusia [Unknown]
  - Drug dose omission [Unknown]
  - Dizziness [Recovering/Resolving]

NARRATIVE: CASE EVENT DATE: 2016
